FAERS Safety Report 9366342 (Version 1)
Quarter: 2013Q2

REPORT INFORMATION
  Report Type: Spontaneous
  Country: US (occurrence: US)
  Receive Date: 20130625
  Receipt Date: 20130625
  Transmission Date: 20140414
  Serious: No
  Sender: FDA-Public Use
  Company Number: US-GLAXOSMITHKLINE-A1003908A

PATIENT
  Sex: Female

DRUGS (3)
  1. VERAMYST [Suspect]
     Route: 045
  2. DULERA [Suspect]
  3. SYMBICORT [Suspect]

REACTIONS (8)
  - Wheezing [Unknown]
  - Influenza [Unknown]
  - Asthenia [Unknown]
  - Swelling face [Unknown]
  - Rash [Unknown]
  - Urticaria [Unknown]
  - Fall [Unknown]
  - Alopecia [Unknown]
